FAERS Safety Report 18508009 (Version 1)
Quarter: 2020Q4

REPORT INFORMATION
  Report Type: Spontaneous
  Country: US (occurrence: US)
  Receive Date: 20201116
  Receipt Date: 20201116
  Transmission Date: 20210114
  Serious: Yes (Other)
  Sender: FDA-Public Use
  Company Number: US-PROGENICS PHARMACEUTICALS-2020PGE00008

PATIENT
  Age: 63 Year

DRUGS (1)
  1. AZEDRA [Suspect]
     Active Substance: IOBENGUANE I-131
     Dosage: ^DOSIMETRIC^ DOSE
     Dates: start: 20201013

REACTIONS (2)
  - Neurological symptom [Unknown]
  - Product dose omission issue [Unknown]

NARRATIVE: CASE EVENT DATE: 20201106
